FAERS Safety Report 7004239-0 (Version None)
Quarter: 2010Q3

REPORT INFORMATION
  Report Type: 
  Country: None (occurrence: None)
  Receive Date: 20100920
  Receipt Date: 20100209
  Transmission Date: 20110219
  Serious: No
  Sender: FDA-Public Use
  Company Number: US-WYE-H13594510

PATIENT
  Sex: Female
  Weight: 90.8 kg

DRUGS (7)
  1. PRISTIQ [Suspect]
     Indication: DEPRESSION
     Route: 048
     Dates: start: 20100101
  2. REMICADE [Concomitant]
  3. AMBIEN [Concomitant]
  4. THYROXINAL [Concomitant]
  5. METOPROLOL [Concomitant]
  6. METHOTREXATE [Concomitant]
  7. KAPIDEX [Concomitant]

REACTIONS (3)
  - CONDITION AGGRAVATED [None]
  - INSOMNIA [None]
  - MEDICATION RESIDUE [None]
